FAERS Safety Report 4837184-7 (Version None)
Quarter: 2005Q4

REPORT INFORMATION
  Report Type: 
  Country: None (occurrence: None)
  Receive Date: 20051122
  Receipt Date: 20051109
  Transmission Date: 20060501
  Serious: Yes (Hospitalization)
  Sender: FDA-Public Use
  Company Number: 200BI020454

PATIENT
  Age: 60 Year
  Sex: Female

DRUGS (2)
  1. AVONEX [Suspect]
     Indication: MULTIPLE SCLEROSIS
     Dosage: 30 UG; QW; IM
     Route: 030
     Dates: start: 20021221, end: 20030815
  2. AVONEX [Suspect]
     Indication: MULTIPLE SCLEROSIS
     Dosage: 0 UG; QW; IM
     Route: 030
     Dates: start: 20030822

REACTIONS (1)
  - OVERDOSE [None]
